FAERS Safety Report 21139000 (Version 4)
Quarter: 2024Q3

REPORT INFORMATION
  Report Type: Spontaneous
  Country: US (occurrence: US)
  Receive Date: 20220727
  Receipt Date: 20240718
  Transmission Date: 20241017
  Serious: No
  Sender: PFIZER
  Company Number: US-PFIZER INC-202200239873

PATIENT
  Age: 52 Year
  Sex: Female

DRUGS (21)
  1. IBRANCE [Suspect]
     Active Substance: PALBOCICLIB
     Indication: Metastases to bone
     Dosage: 1 TAB BY MOUTH ONCE DAILY WITH OR WITHOUT FOOD FOR 21 DAYS,FOLLOWED BY 7 DAYS OFF, EVERY 28 DAYS
     Route: 048
     Dates: start: 20210901
  2. IBRANCE [Suspect]
     Active Substance: PALBOCICLIB
     Indication: Tumour pain
  3. IBRANCE [Suspect]
     Active Substance: PALBOCICLIB
     Indication: Restless legs syndrome
  4. IBRANCE [Suspect]
     Active Substance: PALBOCICLIB
     Indication: Breast cancer female
  5. IBRANCE [Suspect]
     Active Substance: PALBOCICLIB
     Indication: Insomnia
  6. IBRANCE [Suspect]
     Active Substance: PALBOCICLIB
     Indication: Generalised anxiety disorder
  7. IBRANCE [Suspect]
     Active Substance: PALBOCICLIB
     Indication: Anaemia
  8. EPOETIN ALFA [Concomitant]
     Active Substance: ERYTHROPOIETIN
     Indication: Breast cancer female
     Dosage: FLAT DOSING EVERY 2 WEEKS
     Dates: start: 20220628, end: 20230321
  9. EPOETIN ALFA [Concomitant]
     Active Substance: ERYTHROPOIETIN
     Indication: Generalised anxiety disorder
  10. EPOETIN ALFA [Concomitant]
     Active Substance: ERYTHROPOIETIN
     Indication: Anaemia
  11. EPOETIN ALFA [Concomitant]
     Active Substance: ERYTHROPOIETIN
     Indication: Tumour pain
  12. EPOETIN ALFA [Concomitant]
     Active Substance: ERYTHROPOIETIN
     Indication: Insomnia
  13. ANASTROZOLE [Concomitant]
     Active Substance: ANASTROZOLE
     Indication: Metastases to bone
     Dosage: 1 QD
     Route: 048
     Dates: start: 20210830
  14. ANASTROZOLE [Concomitant]
     Active Substance: ANASTROZOLE
     Indication: Tumour pain
  15. ANASTROZOLE [Concomitant]
     Active Substance: ANASTROZOLE
     Indication: Restless legs syndrome
  16. ANASTROZOLE [Concomitant]
     Active Substance: ANASTROZOLE
     Indication: Breast cancer female
  17. ANASTROZOLE [Concomitant]
     Active Substance: ANASTROZOLE
     Indication: Insomnia
  18. ANASTROZOLE [Concomitant]
     Active Substance: ANASTROZOLE
     Indication: Generalised anxiety disorder
  19. ANASTROZOLE [Concomitant]
     Active Substance: ANASTROZOLE
     Indication: Anaemia
  20. FULVESTRANT [Concomitant]
     Active Substance: FULVESTRANT
     Indication: Breast cancer female
     Dosage: (500)D1
     Route: 030
     Dates: start: 20230124
  21. FULVESTRANT [Concomitant]
     Active Substance: FULVESTRANT
     Indication: Generalised anxiety disorder

REACTIONS (3)
  - White blood cell count decreased [Unknown]
  - Rash erythematous [Unknown]
  - Nausea [Unknown]

NARRATIVE: CASE EVENT DATE: 20220101
